FAERS Safety Report 9776234 (Version 1)
Quarter: 2013Q4

REPORT INFORMATION
  Report Type: Spontaneous
  Country: DE (occurrence: DE)
  Receive Date: 20131220
  Receipt Date: 20131220
  Transmission Date: 20140711
  Serious: Yes (Death, Other)
  Sender: FDA-Public Use
  Company Number: DE-MERCK-1312DEU008213

PATIENT
  Age: 21 Year
  Sex: Female

DRUGS (4)
  1. CANCIDAS [Suspect]
     Indication: ATYPICAL PNEUMONIA
     Dosage: 70 MG, UNKNOWN
     Route: 042
     Dates: start: 20090825, end: 20090825
  2. CANCIDAS [Suspect]
     Dosage: 50 MG, UNKNOWN
     Route: 048
     Dates: start: 20090826, end: 20090827
  3. ANTIMICROBIAL (UNSPECIFIED) [Concomitant]
  4. ANALGESIC (UNSPECIFIED) [Concomitant]

REACTIONS (2)
  - Respiratory failure [Fatal]
  - Atypical pneumonia [Fatal]
